FAERS Safety Report 5052986-2 (Version None)
Quarter: 2006Q3

REPORT INFORMATION
  Report Type: 
  Country: None (occurrence: None)
  Receive Date: 20060712
  Receipt Date: 20060629
  Transmission Date: 20061208
  Serious: Yes (Hospitalization, Disabling, Other)
  Sender: FDA-Public Use
  Company Number: 2006082199

PATIENT
  Sex: Female
  Weight: 68.0396 kg

DRUGS (3)
  1. CELEBREX [Suspect]
     Indication: MUSCULOSKELETAL PAIN
     Dosage: 200 MG (200 MG, 1 IN 1 D)
     Dates: start: 19980101, end: 20050101
  2. THEO-DUR [Concomitant]
  3. PROTONIX [Concomitant]

REACTIONS (9)
  - ANTINUCLEAR ANTIBODY POSITIVE [None]
  - FIBROMYALGIA [None]
  - HEART RATE INCREASED [None]
  - MYALGIA [None]
  - MYOFASCIAL PAIN SYNDROME [None]
  - PNEUMONIA [None]
  - PULMONARY FIBROSIS [None]
  - THERAPY NON-RESPONDER [None]
  - WEIGHT INCREASED [None]
